FAERS Safety Report 9795628 (Version 2)
Quarter: 2014Q1

REPORT INFORMATION
  Report Type: Spontaneous
  Country: US (occurrence: US)
  Receive Date: 20140103
  Receipt Date: 20140219
  Transmission Date: 20141002
  Serious: No
  Sender: FDA-Public Use
  Company Number: US-PFIZER INC-2014000039

PATIENT
  Age: 23 Year
  Sex: Female
  Weight: 70.3 kg

DRUGS (2)
  1. ADVIL PM [Suspect]
     Indication: SLEEP DISORDER
     Dosage: TWO CAPLETS TWO TIMES AT NIGHT IN AN INTERVAL OF ONE AND HALF HOURS
     Route: 048
     Dates: start: 20131229
  2. ADVIL PM [Suspect]
     Indication: PAIN

REACTIONS (4)
  - Overdose [Unknown]
  - Drug ineffective [Unknown]
  - Fear [Unknown]
  - Vomiting [Unknown]
